FAERS Safety Report 9402441 (Version 1)
Quarter: 2013Q3

REPORT INFORMATION
  Report Type: Spontaneous
  Country: US (occurrence: None)
  Receive Date: 20130712
  Receipt Date: 20130712
  Transmission Date: 20140515
  Serious: Yes (Hospitalization)
  Sender: FDA-Public Use
  Company Number: None

PATIENT
  Age: 69 Year
  Sex: Female

DRUGS (3)
  1. WARFARIN [Suspect]
     Route: 048
  2. ENOXAPARIIN [Suspect]
     Dosage: SQ
     Route: 058
  3. PERCOCET [Concomitant]

REACTIONS (2)
  - Muscle haemorrhage [None]
  - Haemorrhagic anaemia [None]
